FAERS Safety Report 7967975-5 (Version None)
Quarter: 2011Q4

REPORT INFORMATION
  Report Type: 
  Country: None (occurrence: None)
  Receive Date: 20111209
  Receipt Date: 20111205
  Transmission Date: 20120403
  Serious: Yes (Other)
  Sender: FDA-Public Use
  Company Number: CL-ROCHE-1019433

PATIENT
  Sex: Male
  Weight: 72 kg

DRUGS (4)
  1. SPIRONOLACTONE [Concomitant]
     Route: 048
     Dates: start: 20110429
  2. COPEGUS [Suspect]
     Indication: HEPATITIS C
     Route: 048
     Dates: start: 20110429
  3. FOLIC ACID [Concomitant]
     Route: 048
     Dates: start: 20110429
  4. PEGINTERFERON ALFA-2A [Suspect]
     Indication: HEPATITIS C
     Route: 058
     Dates: start: 20110429

REACTIONS (4)
  - DIZZINESS [None]
  - PYREXIA [None]
  - DEAFNESS UNILATERAL [None]
  - BALANCE DISORDER [None]
